FAERS Safety Report 4603597-1 (Version None)
Quarter: 2005Q1

REPORT INFORMATION
  Report Type: 
  Country: None (occurrence: None)
  Receive Date: 20050310
  Receipt Date: 20050301
  Transmission Date: 20050727
  Serious: Yes (Hospitalization)
  Sender: FDA-Public Use
  Company Number: FR-JNJFOC-20041101851

PATIENT
  Sex: Female
  Weight: 53 kg

DRUGS (10)
  1. BLINDED; ABCIXIMA [Suspect]
     Indication: ACUTE MYOCARDIAL INFARCTION
     Route: 042
  2. RETEPLASE [Suspect]
     Route: 042
  3. RETEPLASE [Suspect]
     Indication: ACUTE MYOCARDIAL INFARCTION
     Route: 042
  4. PLACEBO [Suspect]
     Indication: ACUTE MYOCARDIAL INFARCTION
     Route: 042
  5. ASPIRIN [Concomitant]
     Indication: MYOCARDIAL INFARCTION
     Route: 042
  6. PLAVIX [Concomitant]
     Indication: MYOCARDIAL INFARCTION
     Route: 049
  7. OMEPRAZOLE [Concomitant]
     Route: 049
  8. TAHOR [Concomitant]
     Route: 049
  9. ACEBUTOLOL [Concomitant]
     Indication: MYOCARDIAL INFARCTION
     Route: 049
  10. METHOTREXATE [Concomitant]
     Dosage: MONDAYS

REACTIONS (1)
  - VASCULAR PSEUDOANEURYSM [None]
